FAERS Safety Report 7956221-4 (Version None)
Quarter: 2011Q4

REPORT INFORMATION
  Report Type: 
  Country: None (occurrence: None)
  Receive Date: 20111205
  Receipt Date: 20111125
  Transmission Date: 20120403
  Serious: Yes (Death, Hospitalization)
  Sender: FDA-Public Use
  Company Number: JP-BRISTOL-MYERS SQUIBB COMPANY-16138547

PATIENT
  Age: 83 Year
  Sex: Female

DRUGS (8)
  1. MUCOSTA [Concomitant]
     Indication: PROPHYLAXIS AGAINST GASTROINTESTINAL ULCER
  2. FOLIC ACID [Concomitant]
     Indication: PROPHYLAXIS
  3. PYDOXAL [Concomitant]
     Indication: PROPHYLAXIS
  4. LOXONIN [Concomitant]
     Indication: RHEUMATOID ARTHRITIS
  5. METHOTREXATE [Suspect]
  6. ORENCIA [Suspect]
     Indication: RHEUMATOID ARTHRITIS
     Dosage: THERAPY ON 23MAY11,06JUN11,04JUL11,01AUG11,29AUG11
     Route: 041
     Dates: start: 20110509
  7. METHYCOBAL [Concomitant]
     Indication: PROPHYLAXIS
  8. ISONIAZID [Concomitant]
     Indication: TUBERCULOSIS

REACTIONS (2)
  - RESPIRATORY FAILURE [None]
  - INTERSTITIAL LUNG DISEASE [None]
